FAERS Safety Report 25336503 (Version 1)
Quarter: 2025Q2

REPORT INFORMATION
  Report Type: Spontaneous
  Country: US (occurrence: None)
  Receive Date: 20250519
  Receipt Date: 20250519
  Transmission Date: 20250716
  Serious: Yes (Hospitalization)
  Sender: FDA-CTU
  Company Number: None

PATIENT
  Age: 24 Year
  Sex: Female

DRUGS (4)
  1. RINVOQ [Suspect]
     Active Substance: UPADACITINIB
     Indication: Dermatitis atopic
     Route: 048
     Dates: start: 20241230
  2. METHOTREXATE SODIUM [Concomitant]
     Active Substance: METHOTREXATE SODIUM
  3. RINVOQ [Concomitant]
     Active Substance: UPADACITINIB
  4. WINLEVI [Concomitant]
     Active Substance: CLASCOTERONE

REACTIONS (8)
  - Skin infection [None]
  - Acne [None]
  - Subcutaneous abscess [None]
  - Abdominal pain [None]
  - Quality of life decreased [None]
  - Pyrexia [None]
  - Hyperhidrosis [None]
  - Therapy interrupted [None]

NARRATIVE: CASE EVENT DATE: 20250322
